FAERS Safety Report 6914760-9 (Version None)
Quarter: 2010Q3

REPORT INFORMATION
  Report Type: 
  Country: None (occurrence: None)
  Receive Date: 20100809
  Receipt Date: 20100803
  Transmission Date: 20110219
  Serious: Yes (Life-Threatening, Hospitalization, Other)
  Sender: FDA-Public Use
  Company Number: FR-ELI_LILLY_AND_COMPANY-FR201008000470

PATIENT
  Sex: Male

DRUGS (4)
  1. HUMALOG [Suspect]
     Indication: TYPE 1 DIABETES MELLITUS
     Dosage: UNK, UNKNOWN
     Route: 058
     Dates: start: 20100528, end: 20100607
  2. LOVENOX [Concomitant]
     Indication: PROPHYLAXIS
     Dosage: UNK, UNKNOWN
     Route: 058
     Dates: start: 20100521, end: 20100607
  3. KEPPRA [Concomitant]
     Indication: EPILEPSY
     Dosage: 500 MG, DAILY (1/D)
     Route: 042
     Dates: start: 20100528, end: 20100607
  4. VANCOMYCIN HCL [Concomitant]
     Dosage: 2 G, DAILY (1/D)
     Route: 065

REACTIONS (2)
  - EOSINOPHILIA [None]
  - SEPTIC SHOCK [None]
